FAERS Safety Report 23450723 (Version 5)
Quarter: 2025Q1

REPORT INFORMATION
  Report Type: Spontaneous
  Country: RU (occurrence: RU)
  Receive Date: 20240129
  Receipt Date: 20250312
  Transmission Date: 20250409
  Serious: Yes (Hospitalization, Other)
  Sender: ROCHE
  Company Number: RU-ROCHE-3494541

PATIENT
  Age: 61 Year
  Sex: Female
  Weight: 44.0 kg

DRUGS (3)
  1. TRASTUZUMAB [Suspect]
     Active Substance: TRASTUZUMAB
     Indication: Breast cancer
     Route: 065
     Dates: start: 202005
  2. KADCYLA [Suspect]
     Active Substance: ADO-TRASTUZUMAB EMTANSINE
     Indication: Breast cancer
     Route: 042
     Dates: start: 20220110
  3. PACLITAXEL [Suspect]
     Active Substance: PACLITAXEL
     Indication: Breast cancer
     Route: 065

REACTIONS (24)
  - Gastric haemorrhage [Unknown]
  - Anaemia [Unknown]
  - Mallory-Weiss syndrome [Unknown]
  - Gastric ulcer haemorrhage [Unknown]
  - Thrombocytopenia [Unknown]
  - Aortic arteriosclerosis [Unknown]
  - Leukodystrophy [Unknown]
  - Hippocampal sclerosis [Unknown]
  - Intervertebral discitis [Unknown]
  - Haemangioma [Unknown]
  - Splenic cyst [Unknown]
  - Coronavirus infection [Unknown]
  - Blood pressure increased [Unknown]
  - Hepatosplenomegaly [Unknown]
  - Chronic gastritis [Unknown]
  - Synovitis [Unknown]
  - Joint effusion [Unknown]
  - Aortic arteriosclerosis [Unknown]
  - Hepatotoxicity [Unknown]
  - Blood disorder [Unknown]
  - Metastases to lymph nodes [Unknown]
  - Haemangioma of liver [Unknown]
  - Colon cancer [Unknown]
  - Hepatic cyst [Unknown]
